FAERS Safety Report 20391764 (Version 5)
Quarter: 2022Q3

REPORT INFORMATION
  Report Type: Report from Study
  Country: US (occurrence: US)
  Receive Date: 20220128
  Receipt Date: 20220917
  Transmission Date: 20221027
  Serious: Yes (Hospitalization, Other)
  Sender: FDA-Public Use
  Company Number: US-NOVARTISTESTPH-NVSC2022US016914

PATIENT
  Age: 78 Year
  Sex: Female

DRUGS (2)
  1. ENTRESTO [Suspect]
     Active Substance: SACUBITRIL\VALSARTAN
     Indication: Cardiac failure
     Dosage: 50 MG, BID (24/26MG)
     Route: 048
     Dates: start: 202112
  2. JARDIANCE [Suspect]
     Active Substance: EMPAGLIFLOZIN
     Indication: Product used for unknown indication
     Dosage: UNK
     Route: 065

REACTIONS (10)
  - Localised infection [Unknown]
  - Neuropathy peripheral [Unknown]
  - Throat clearing [Unknown]
  - Gait disturbance [Unknown]
  - Dizziness postural [Unknown]
  - Dizziness [Unknown]
  - Foot fracture [Unknown]
  - Hypoaesthesia [Unknown]
  - Renal disorder [Unknown]
  - Dry throat [Unknown]

NARRATIVE: CASE EVENT DATE: 20220912
